FAERS Safety Report 7867595-7 (Version None)
Quarter: 2011Q4

REPORT INFORMATION
  Report Type: 
  Country: None (occurrence: None)
  Receive Date: 20111028
  Receipt Date: 20111013
  Transmission Date: 20120403
  Serious: Yes (Other)
  Sender: FDA-Public Use
  Company Number: FR-ARROW GEN-2011-17235

PATIENT
  Age: 78 Year
  Sex: Male

DRUGS (3)
  1. CEFTRIAXONE [Suspect]
     Indication: PYELONEPHRITIS
  2. CIPROFLOXACIN HCL [Suspect]
     Indication: PYELONEPHRITIS
  3. OFLOXACIN [Suspect]
     Indication: PYELONEPHRITIS

REACTIONS (5)
  - BACTERAEMIA [None]
  - ENTEROBACTER INFECTION [None]
  - ENDOCARDITIS [None]
  - DISEASE RECURRENCE [None]
  - DRUG INEFFECTIVE [None]
